FAERS Safety Report 4553283-1 (Version None)
Quarter: 2005Q1

REPORT INFORMATION
  Report Type: 
  Country: None (occurrence: None)
  Receive Date: 20050113
  Receipt Date: 20050106
  Transmission Date: 20050727
  Serious: Yes (Other)
  Sender: FDA-Public Use
  Company Number: FRWYE319806JAN05

PATIENT
  Age: 20 Year
  Sex: Male

DRUGS (4)
  1. EFFEXOR [Suspect]
     Indication: DEPRESSION
     Dosage: 50 MG 2X PER 1 DAY
     Route: 048
     Dates: start: 20040701, end: 20041214
  2. EFFEXOR [Suspect]
     Indication: DEPRESSION
     Dosage: 50 MG 2X PER 1 DAY
     Route: 048
     Dates: start: 20041215, end: 20041222
  3. LOXAPINE HCL [Concomitant]
  4. EFFEXOR XR [Suspect]
     Dosage: 37.5 MG 2X 1 PER DAY
     Route: 048
     Dates: start: 20041223

REACTIONS (7)
  - AGGRESSION [None]
  - AGITATION [None]
  - ANXIETY [None]
  - CONDITION AGGRAVATED [None]
  - DEPRESSION [None]
  - DRUG WITHDRAWAL SYNDROME [None]
  - SUICIDAL IDEATION [None]
